FAERS Safety Report 7658849-8 (Version None)
Quarter: 2011Q3

REPORT INFORMATION
  Report Type: 
  Country: None (occurrence: None)
  Receive Date: 20110802
  Receipt Date: 20110726
  Transmission Date: 20111222
  Serious: Yes (Disabling)
  Sender: FDA-Public Use
  Company Number: 2011141

PATIENT
  Sex: Male

DRUGS (1)
  1. EXTRA ACTION COUGH SYRUP / RUGBY LABORATORIES, INC. [Suspect]
     Indication: ANTITUSSIVE THERAPY
     Dosage: ORAL
     Route: 048
     Dates: start: 20091001

REACTIONS (1)
  - RASH [None]
